FAERS Safety Report 5477005-5 (Version None)
Quarter: 2007Q4

REPORT INFORMATION
  Report Type: 
  Country: None (occurrence: None)
  Receive Date: 20071003
  Receipt Date: 20071003
  Transmission Date: 20080405
  Serious: Yes (Life-Threatening, Hospitalization)
  Sender: FDA-Public Use
  Company Number: None

PATIENT
  Age: 26 Year
  Sex: Male
  Weight: 91.173 kg

DRUGS (2)
  1. ZYPREXA [Suspect]
     Indication: SCHIZOAFFECTIVE DISORDER
     Dosage: 15 MG  BID  PO
     Route: 048
     Dates: start: 20070906, end: 20070910
  2. BENZTROPINE   1 MG [Suspect]
     Indication: MUSCLE RIGIDITY
     Dosage: 1 MG   BID  PO
     Route: 048
     Dates: start: 20070904, end: 20070910

REACTIONS (3)
  - ASPIRATION [None]
  - NEUROLEPTIC MALIGNANT SYNDROME [None]
  - RESPIRATORY DISTRESS [None]
